FAERS Safety Report 4349397-1 (Version None)
Quarter: 2004Q2

REPORT INFORMATION
  Report Type: 
  Country: None (occurrence: None)
  Receive Date: 20040428
  Receipt Date: 20040413
  Transmission Date: 20050107
  Serious: Yes (Other)
  Sender: FDA-Public Use
  Company Number: DK-GLAXOSMITHKLINE-B0329896A

PATIENT
  Sex: Male

DRUGS (2)
  1. LAMOTRIGINE [Suspect]
     Dosage: 25MG PER DAY
     Route: 048
     Dates: start: 20040220, end: 20040310
  2. NORTRIPTYLINE HCL [Suspect]
     Route: 065
     Dates: start: 20040120

REACTIONS (2)
  - PSORIASIS [None]
  - RASH [None]
